FAERS Safety Report 24287059 (Version 1)
Quarter: 2024Q3

REPORT INFORMATION
  Report Type: Spontaneous
  Country: US (occurrence: US)
  Receive Date: 20240905
  Receipt Date: 20240905
  Transmission Date: 20241017
  Serious: No
  Sender: PERRIGO
  Company Number: US-PERRIGO-24US006067

PATIENT

DRUGS (1)
  1. ACETAMINOPHEN AND IBUPROFEN [Suspect]
     Active Substance: ACETAMINOPHEN\IBUPROFEN
     Indication: Product used for unknown indication
     Dosage: 14 TABLETS, UNKNOWN
     Route: 048
     Dates: start: 20240622

REACTIONS (2)
  - Malaise [Unknown]
  - Overdose [Unknown]

NARRATIVE: CASE EVENT DATE: 20240622
